FAERS Safety Report 5514342-X (Version None)
Quarter: 2007Q4

REPORT INFORMATION
  Report Type: 
  Country: None (occurrence: None)
  Receive Date: 20071113
  Receipt Date: 20070418
  Transmission Date: 20080405
  Serious: No
  Sender: FDA-Public Use
  Company Number: A0647832A

PATIENT
  Sex: Male

DRUGS (1)
  1. COREG [Suspect]
     Dosage: 6.25MG SINGLE DOSE
     Route: 048
     Dates: start: 20070101, end: 20070101

REACTIONS (1)
  - HYPOTENSION [None]
